FAERS Safety Report 18576539 (Version 1)
Quarter: 2020Q4

REPORT INFORMATION
  Report Type: Spontaneous
  Country: US (occurrence: US)
  Receive Date: 20201203
  Receipt Date: 20201203
  Transmission Date: 20210114
  Serious: No
  Sender: FDA-Public Use
  Company Number: US-PFIZER INC-2020474616

PATIENT
  Age: 52 Year
  Sex: Female
  Weight: 76.66 kg

DRUGS (2)
  1. LYRICA [Suspect]
     Active Substance: PREGABALIN
     Indication: FIBROMYALGIA
     Dosage: 25 MG
     Dates: start: 202007, end: 202007
  2. LYRICA [Suspect]
     Active Substance: PREGABALIN
     Indication: NEUROPATHY PERIPHERAL
     Dosage: 150 MG
     Dates: start: 20200717

REACTIONS (5)
  - Abnormal weight gain [Unknown]
  - Vitamin C deficiency [Unknown]
  - Muscle spasms [Not Recovered/Not Resolved]
  - Fluid retention [Unknown]
  - Peripheral swelling [Unknown]

NARRATIVE: CASE EVENT DATE: 2020
